FAERS Safety Report 16249683 (Version 1)
Quarter: 2019Q2

REPORT INFORMATION
  Report Type: Other
  Country: GR (occurrence: GR)
  Receive Date: 20190429
  Receipt Date: 20190429
  Transmission Date: 20190711
  Serious: Yes (Other)
  Sender: FDA-Public Use
  Company Number: GR-RARE DISEASE THERAPEUTICS, INC.-2066383

PATIENT
  Age: 11 Year
  Sex: Female

DRUGS (6)
  1. PURIXAN [Suspect]
     Active Substance: MERCAPTOPURINE
     Indication: NON-HODGKIN^S LYMPHOMA
     Route: 065
  2. CYCLOPHOSPHAMIDE. [Suspect]
     Active Substance: CYCLOPHOSPHAMIDE
     Route: 065
  3. ARACYTIN [Suspect]
     Active Substance: CYTARABINE
     Route: 065
  4. METHOTREXATE SODIUM. [Suspect]
     Active Substance: METHOTREXATE SODIUM
     Route: 065
  5. VINCRISTINE SULFATE. [Suspect]
     Active Substance: VINCRISTINE SULFATE
  6. ASPARAGINASE [Suspect]
     Active Substance: ASPARAGINASE
     Route: 065

REACTIONS (2)
  - Papillary thyroid cancer [Unknown]
  - Off label use [None]
